FAERS Safety Report 4719797-6 (Version None)
Quarter: 2005Q3

REPORT INFORMATION
  Report Type: 
  Country: None (occurrence: None)
  Receive Date: 20050721
  Receipt Date: 20041108
  Transmission Date: 20060218
  Serious: No
  Sender: FDA-Public Use
  Company Number: US-GLAXOSMITHKLINE-A0533078A

PATIENT
  Age: 71 Year
  Sex: Male

DRUGS (8)
  1. AVANDIA [Suspect]
     Dosage: 4MG PER DAY
     Route: 048
  2. NEURONTIN [Concomitant]
  3. GLUCOTROL XL [Concomitant]
  4. DITROPAN [Concomitant]
  5. DIOVAN [Concomitant]
  6. TORSEMIDE [Concomitant]
  7. COUMADIN [Concomitant]
  8. METFORMIN [Concomitant]

REACTIONS (2)
  - HAEMATOCHEZIA [None]
  - MELAENA [None]
